FAERS Safety Report 16693534 (Version 1)
Quarter: 2019Q3

REPORT INFORMATION
  Report Type: Spontaneous
  Country: FR (occurrence: FR)
  Receive Date: 20190812
  Receipt Date: 20190812
  Transmission Date: 20191004
  Serious: Yes (Other)
  Sender: FDA-Public Use
  Company Number: FR-HQ SPECIALTY-FR-2019INT000203

PATIENT

DRUGS (3)
  1. VINORELBINE [Suspect]
     Active Substance: VINORELBINE TARTRATE
     Indication: NON-SMALL CELL LUNG CANCER
     Dosage: 30 MG/M2, WEEKLY FOR 6 WEEKS
     Route: 048
  2. CISPLATIN. [Suspect]
     Active Substance: CISPLATIN
     Indication: NON-SMALL CELL LUNG CANCER
     Dosage: 30 MG/M2, WEEKLY FOR 6 WEEKS
     Route: 042
  3. RADIOTHERAPY [Suspect]
     Active Substance: RADIATION THERAPY
     Indication: NON-SMALL CELL LUNG CANCER
     Dosage: 2 GY/DAY (5 DAYS/WEEK) FOR 6.5 WEEKS
     Route: 065

REACTIONS (2)
  - Febrile neutropenia [Unknown]
  - Toxicity to various agents [Unknown]
